FAERS Safety Report 4503627-1 (Version None)
Quarter: 2004Q3

REPORT INFORMATION
  Report Type: 
  Country: None (occurrence: None)
  Receive Date: 20040928
  Receipt Date: 20040611
  Transmission Date: 20050211
  Serious: No
  Sender: FDA-Public Use
  Company Number: 04P-163-0263607-00

PATIENT
  Sex: Female
  Weight: 65.7716 kg

DRUGS (1)
  1. HUMIRA [Suspect]
     Indication: RHEUMATOID ARTHRITIS
     Dosage: 40 MG, SUBCUTANEOUS
     Route: 058
     Dates: start: 20040106

REACTIONS (3)
  - BRONCHITIS [None]
  - DRUG INEFFECTIVE [None]
  - UPPER RESPIRATORY TRACT INFECTION [None]
